FAERS Safety Report 10671623 (Version 1)
Quarter: 2014Q4

REPORT INFORMATION
  Report Type: Spontaneous
  Country: US (occurrence: US)
  Receive Date: 20141223
  Receipt Date: 20141223
  Transmission Date: 20150529
  Serious: No
  Sender: FDA-Public Use
  Company Number: US-GLAXOSMITHKLINE-US2014GSK040242

PATIENT
  Sex: Female

DRUGS (7)
  1. TYKERB [Suspect]
     Active Substance: LAPATINIB DITOSYLATE
     Indication: BREAST CANCER FEMALE
     Dosage: 1250 MG, QD
     Dates: start: 201409
  2. VITAMIN D [Concomitant]
     Active Substance: CHOLECALCIFEROL
  3. XELODA [Concomitant]
     Active Substance: CAPECITABINE
  4. MAGNESIUM [Concomitant]
     Active Substance: MAGNESIUM
  5. POTASSIUM [Concomitant]
     Active Substance: POTASSIUM
  6. METFORMIN [Concomitant]
     Active Substance: METFORMIN HYDROCHLORIDE
  7. VITAMIN B6 [Concomitant]
     Active Substance: PYRIDOXINE HYDROCHLORIDE

REACTIONS (2)
  - Rash [Unknown]
  - Myalgia [Unknown]
